FAERS Safety Report 7597473-2 (Version None)
Quarter: 2011Q3

REPORT INFORMATION
  Report Type: 
  Country: None (occurrence: None)
  Receive Date: 20110708
  Receipt Date: 20110629
  Transmission Date: 20111222
  Serious: Yes (Hospitalization, Other)
  Sender: FDA-Public Use
  Company Number: PHHY2011US58969

PATIENT
  Age: 24 Year
  Sex: Female

DRUGS (23)
  1. ASPIRIN [Concomitant]
     Dosage: UNK
  2. ALPRAZOLAM [Concomitant]
     Dosage: UNK
  3. LEVOFLOXACIN [Concomitant]
     Dosage: UNK
  4. VERPAMIL HCL [Concomitant]
     Dosage: UNK
  5. CLONAZEPAM [Concomitant]
     Dosage: UNK
  6. AMINOPYRIDINE [Concomitant]
     Dosage: UNK
  7. AZITHROMYCIN [Concomitant]
     Dosage: UNK
  8. GLATIRAMER ACETATE [Concomitant]
     Dosage: UNK
  9. METHYLPREDNISOLONE [Concomitant]
     Dosage: UNK
  10. NATALIZUMAB [Concomitant]
     Dosage: UNK
  11. AMITRIPTYLINE HCL [Concomitant]
     Dosage: UNK
  12. INTERFERON BETA-1A [Concomitant]
     Dosage: UNK
     Route: 030
  13. GABAPENTIN [Concomitant]
     Dosage: UNK
  14. GILENYA [Suspect]
     Dosage: UNK
  15. IBUPROFEN [Concomitant]
     Dosage: UNK
  16. NAPROXEN [Concomitant]
     Dosage: UNK
  17. ACETAMINOPHEN [Concomitant]
     Dosage: UNK
  18. SUMATRIPTAN SUCCINATE [Concomitant]
     Dosage: UNK
  19. PREDNISONE [Concomitant]
     Dosage: UNK
  20. TOPIRAMATE [Concomitant]
     Dosage: UNK
  21. MYCOPHENOLATE MOFETIL [Concomitant]
     Dosage: UNK
  22. EXTAVIA [Suspect]
     Dosage: UNK
     Route: 058
  23. OXYGEN THERAPY [Concomitant]
     Dosage: UNK

REACTIONS (6)
  - DEVICE RELATED INFECTION [None]
  - SYSTEMIC LUPUS ERYTHEMATOSUS [None]
  - OPTIC NEURITIS [None]
  - VITAMIN D DEFICIENCY [None]
  - VITAMIN B12 DEFICIENCY [None]
  - PLATELET DISORDER [None]
